FAERS Safety Report 4366371-X (Version None)
Quarter: 2004Q2

REPORT INFORMATION
  Report Type: 
  Country: None (occurrence: None)
  Receive Date: 20040527
  Receipt Date: 20040203
  Transmission Date: 20050107
  Serious: No
  Sender: FDA-Public Use
  Company Number: US-GLAXOSMITHKLINE-A0497349A

PATIENT
  Age: 47 Year
  Sex: Female

DRUGS (2)
  1. ALBUTEROL [Suspect]
     Indication: ASTHMA
     Route: 065
  2. ADVAIR DISKUS 100/50 [Concomitant]
     Indication: ASTHMA
     Route: 055

REACTIONS (1)
  - WHEEZING [None]
